FAERS Safety Report 13760075 (Version 1)
Quarter: 2017Q3

REPORT INFORMATION
  Report Type: Report from Study
  Country: US (occurrence: US)
  Receive Date: 20170717
  Receipt Date: 20170717
  Transmission Date: 20171127
  Serious: Yes (Death, Other)
  Sender: FDA-Public Use
  Company Number: US-PFIZER INC-2017303408

PATIENT

DRUGS (4)
  1. OLAPARIB. [Suspect]
     Active Substance: OLAPARIB
     Dosage: 25 MG, 2X/DAY ON DAY 1 OF EACH CYCLE
  2. OLAPARIB. [Suspect]
     Active Substance: OLAPARIB
     Indication: PANCREATIC CARCINOMA
     Dosage: 100 MG, 2X/DAY(DAYS 1 AND 8)
  3. CISPLATIN. [Suspect]
     Active Substance: CISPLATIN
     Indication: PANCREATIC CARCINOMA
     Dosage: 25 MG/M2, CYCLIC(DAYS 1 AND 8)
  4. IRINOTECAN HCL [Suspect]
     Active Substance: IRINOTECAN HYDROCHLORIDE
     Indication: PANCREATIC CARCINOMA
     Dosage: 70 MG/M2, CYCLIC(DAYS 1 AND 8)

REACTIONS (3)
  - Cytopenia [Unknown]
  - Second primary malignancy [Fatal]
  - Myelodysplastic syndrome [Fatal]
